FAERS Safety Report 4382914-4 (Version None)
Quarter: 2004Q2

REPORT INFORMATION
  Report Type: 
  Country: None (occurrence: None)
  Receive Date: 20040617
  Receipt Date: 20040610
  Transmission Date: 20050107
  Serious: Yes (Disabling, Other)
  Sender: FDA-Public Use
  Company Number: 2004038955

PATIENT
  Sex: Male

DRUGS (1)
  1. DOXYCYCLINE [Suspect]
     Indication: ILL-DEFINED DISORDER
     Dates: start: 20020521

REACTIONS (2)
  - BLINDNESS [None]
  - POLYTRAUMATISM [None]
